FAERS Safety Report 4432693-7 (Version None)
Quarter: 2004Q3

REPORT INFORMATION
  Report Type: 
  Country: None (occurrence: None)
  Receive Date: 20040820
  Receipt Date: 20040729
  Transmission Date: 20050211
  Serious: Yes (Hospitalization, Other)
  Sender: FDA-Public Use
  Company Number: USA040463891

PATIENT
  Age: 69 Year
  Sex: Female

DRUGS (10)
  1. FORTEO [Suspect]
     Indication: OSTEOPOROSIS
     Dosage: 20 UG DAY
     Dates: start: 20040218
  2. PENTASA [Concomitant]
  3. PURINETHOL [Concomitant]
  4. CHOLESTYRAMINE [Concomitant]
  5. ACIPHEX [Concomitant]
  6. VERAPAMIL [Concomitant]
  7. NEURONTIN [Concomitant]
  8. FUROSEMIDE [Concomitant]
  9. KLOR-CON (POTASSIUM CHORIDE) [Concomitant]
  10. MULTIVITAMIN [Concomitant]

REACTIONS (3)
  - CHEST X-RAY ABNORMAL [None]
  - HAEMATEMESIS [None]
  - MUSCLE CRAMP [None]
